FAERS Safety Report 9352681 (Version 2)
Quarter: 2013Q3

REPORT INFORMATION
  Report Type: Spontaneous
  Country: US (occurrence: US)
  Receive Date: 20130618
  Receipt Date: 20130712
  Transmission Date: 20140515
  Serious: No
  Sender: FDA-Public Use
  Company Number: US-009507513-1306USA004616

PATIENT
  Age: 42 Year
  Sex: Female
  Weight: 69.84 kg

DRUGS (2)
  1. FOLLISTIM AQ CARTRIDGE [Suspect]
     Indication: IN VITRO FERTILISATION
     Dosage: 225 IU - 300 IU, QD, CARTRIDGE
     Route: 058
     Dates: start: 201303, end: 20130608
  2. SYNTHROID [Concomitant]
     Dosage: UNK

REACTIONS (3)
  - Drug ineffective [Unknown]
  - Accidental exposure to product [Unknown]
  - Product quality issue [Unknown]
